FAERS Safety Report 4456841-8 (Version None)
Quarter: 2004Q3

REPORT INFORMATION
  Report Type: 
  Country: None (occurrence: None)
  Receive Date: 20040923
  Receipt Date: 20040915
  Transmission Date: 20050211
  Serious: Yes (Hospitalization)
  Sender: FDA-Public Use
  Company Number: PHBS2004JP12303

PATIENT
  Age: 3 Year
  Sex: Female

DRUGS (5)
  1. CYCLOSPORINE [Suspect]
     Indication: STEM CELL TRANSPLANT
     Dosage: 6 MG/KG/D
     Route: 048
     Dates: start: 20000101
  2. CYCLOSPORINE [Suspect]
     Route: 042
     Dates: start: 20001001
  3. PREDNISOLONE [Concomitant]
     Dosage: 0.5 MG/KG/D
     Dates: start: 20000101
  4. PREDNISOLONE [Concomitant]
     Dosage: 2 MG/KG/DAY
  5. METHYLPREDNISOLONE [Concomitant]
     Dosage: PULSE
     Dates: start: 20001225

REACTIONS (26)
  - BLOOD CREATININE INCREASED [None]
  - BLOOD UREA INCREASED [None]
  - DRUG LEVEL DECREASED [None]
  - EYE MOVEMENT DISORDER [None]
  - GRAND MAL CONVULSION [None]
  - HAEMODIALYSIS [None]
  - HYPERCHOLESTEROLAEMIA [None]
  - HYPOALBUMINAEMIA [None]
  - HYPOVENTILATION [None]
  - INTERLEUKIN LEVEL INCREASED [None]
  - LETHARGY [None]
  - NEPHROTIC SYNDROME [None]
  - OEDEMA [None]
  - OLIGURIA [None]
  - PARALYSIS FLACCID [None]
  - PARTIAL SEIZURES [None]
  - PERITONEAL DIALYSIS [None]
  - PROTEINURIA [None]
  - PYREXIA [None]
  - RENAL FAILURE ACUTE [None]
  - RENAL TUBULAR NECROSIS [None]
  - SOMNOLENCE [None]
  - SUPERIOR SAGITTAL SINUS THROMBOSIS [None]
  - TOXIC INDUCED ENCEPHALOPATHY [None]
  - TRANSAMINASES INCREASED [None]
  - VOMITING [None]
